FAERS Safety Report 9237494 (Version 2)
Quarter: 2013Q2

REPORT INFORMATION
  Report Type: Spontaneous
  Country: US (occurrence: US)
  Receive Date: 20130417
  Receipt Date: 20130507
  Transmission Date: 20140414
  Serious: Yes (Death, Hospitalization)
  Sender: FDA-Public Use
  Company Number: US-AMGEN-USASP2013026086

PATIENT
  Age: 58 Year
  Sex: Female

DRUGS (23)
  1. NEULASTA [Suspect]
     Indication: PRODUCT USED FOR UNKNOWN INDICATION
     Dosage: UNK
  2. RITUXIMAB [Concomitant]
     Indication: NON-HODGKIN^S LYMPHOMA STAGE I
     Dosage: UNK
  3. CYCLOPHOSPHAMIDE [Concomitant]
     Indication: NON-HODGKIN^S LYMPHOMA STAGE I
     Dosage: UNK
  4. DOXORUBICIN [Concomitant]
     Indication: NON-HODGKIN^S LYMPHOMA STAGE I
     Dosage: UNK
  5. ONCOVIN [Concomitant]
     Indication: NON-HODGKIN^S LYMPHOMA STAGE I
     Dosage: UNK
  6. PREDNISOLONE [Concomitant]
     Indication: NON-HODGKIN^S LYMPHOMA STAGE I
     Dosage: UNK
  7. PREDNISONE [Concomitant]
     Dosage: UNK
  8. FISH OIL [Concomitant]
     Dosage: UNK
  9. LEVOTHYROXINE [Concomitant]
     Dosage: UNK
  10. PROBIOTICS [Concomitant]
     Dosage: UNK
  11. ADVAIR [Concomitant]
     Dosage: UNK
  12. SPIRIVA [Concomitant]
     Dosage: UNK
  13. HYDROCHLOROTHIAZIDE [Concomitant]
     Dosage: UNK
  14. OS-CAL + D [Concomitant]
     Dosage: UNK
  15. VITAMIN D3 [Concomitant]
     Dosage: UNK
  16. RELAFEN [Concomitant]
     Dosage: UNK
  17. LIDODERM [Concomitant]
     Dosage: UNK
  18. CITALOPRAM HYDROBROMIDE [Concomitant]
     Dosage: UNK
  19. ATENOLOL [Concomitant]
     Dosage: UNK
  20. ULTRAM                             /00599202/ [Concomitant]
     Dosage: UNK
  21. ZANAFLEX [Concomitant]
     Dosage: UNK
  22. VITAMIN B12                        /00056201/ [Concomitant]
     Dosage: UNK
  23. VITAMIN B6 [Concomitant]
     Dosage: UNK

REACTIONS (6)
  - Pulmonary mass [Fatal]
  - Chronic obstructive pulmonary disease [Fatal]
  - Pneumonia [Fatal]
  - Dyspnoea [Fatal]
  - Emphysema [Unknown]
  - Mucosal inflammation [Unknown]
